FAERS Safety Report 4424452-6 (Version None)
Quarter: 2004Q3

REPORT INFORMATION
  Report Type: 
  Country: None (occurrence: None)
  Receive Date: 20040812
  Receipt Date: 20040803
  Transmission Date: 20050211
  Serious: Yes (Death, Other)
  Sender: FDA-Public Use
  Company Number: US-BRISTOL-MYERS SQUIBB COMPANY-12658571

PATIENT

DRUGS (4)
  1. HYDROXYUREA [Suspect]
     Indication: CARCINOMA
  2. PACLITAXEL [Suspect]
     Indication: CARCINOMA
     Dosage: DAY 1
     Route: 042
  3. FLUOROURACIL [Suspect]
     Indication: CARCINOMA
     Dosage: DAYS 0-5
  4. RADIATION THERAPY [Suspect]
     Indication: CARCINOMA
     Dosage: 150 CGY DAYS 1-5 FOR 5 CYCLES OVER 10 WEEKS (7200-7500 CGY)

REACTIONS (9)
  - DEATH [None]
  - DERMATITIS [None]
  - ENDOCARDITIS BACTERIAL [None]
  - HAEMORRHAGE [None]
  - LEUKOPENIA [None]
  - MUCOSAL INFLAMMATION [None]
  - PAIN [None]
  - PULMONARY EMBOLISM [None]
  - THROMBOCYTOPENIA [None]
